FAERS Safety Report 7812001-1 (Version None)
Quarter: 2011Q4

REPORT INFORMATION
  Report Type: 
  Country: None (occurrence: None)
  Receive Date: 20111013
  Receipt Date: 20111010
  Transmission Date: 20120403
  Serious: Yes (Other)
  Sender: FDA-Public Use
  Company Number: CZ-ROCHE-804358

PATIENT
  Age: 2 Year
  Sex: Female

DRUGS (1)
  1. ACTEMRA [Suspect]
     Indication: JUVENILE ARTHRITIS
     Route: 042

REACTIONS (1)
  - SPONDYLITIS [None]
